FAERS Safety Report 13807292 (Version 4)
Quarter: 2018Q1

REPORT INFORMATION
  Report Type: Report from Study
  Country: US (occurrence: US)
  Receive Date: 20170728
  Receipt Date: 20180125
  Transmission Date: 20180508
  Serious: No
  Sender: FDA-Public Use
  Company Number: US-AMGEN-USASL2017105905

PATIENT
  Age: 74 Year
  Sex: Female
  Weight: 61.22 kg

DRUGS (1)
  1. REPATHA [Suspect]
     Active Substance: EVOLOCUMAB
     Indication: HYPERCHOLESTEROLAEMIA
     Dosage: 140 MG, Q2WK
     Route: 065
     Dates: start: 20170613, end: 20170711

REACTIONS (3)
  - Wrong technique in product usage process [Unknown]
  - Injury associated with device [Unknown]
  - Muscle spasms [Not Recovered/Not Resolved]
